FAERS Safety Report 4621665-5 (Version None)
Quarter: 2005Q1

REPORT INFORMATION
  Report Type: 
  Country: None (occurrence: None)
  Receive Date: 20050328
  Receipt Date: 20050315
  Transmission Date: 20050727
  Serious: Yes (Hospitalization, Other)
  Sender: FDA-Public Use
  Company Number: 2005008662

PATIENT
  Sex: Male

DRUGS (6)
  1. BEXTRA [Suspect]
     Indication: PAIN
     Dosage: 10 MG (10 MG, 1 IN 1 D)
  2. CELEBREX [Suspect]
     Indication: MONARTHRITIS
     Dosage: 200 MG
  3. CELEBREX [Suspect]
     Indication: ROTATOR CUFF SYNDROME
     Dosage: 200 MG
  4. IBUPROFEN [Suspect]
     Indication: MONARTHRITIS
     Dosage: 200 MG
  5. IBUPROFEN [Suspect]
     Indication: ROTATOR CUFF SYNDROME
     Dosage: 200 MG
  6. HYALURONIC ACID (HYALURONIC ACID) [Concomitant]

REACTIONS (6)
  - DRUG INEFFECTIVE [None]
  - INTENTIONAL MISUSE [None]
  - MENISCUS LESION [None]
  - OSTEOARTHRITIS [None]
  - ROTATOR CUFF SYNDROME [None]
  - STOMACH DISCOMFORT [None]
